FAERS Safety Report 5755100-0 (Version None)
Quarter: 2008Q2

REPORT INFORMATION
  Report Type: 
  Country: None (occurrence: None)
  Receive Date: 20080602
  Receipt Date: 20080225
  Transmission Date: 20081010
  Serious: No
  Sender: FDA-Public Use
  Company Number: A0713007A

PATIENT
  Age: 32 Year
  Sex: Male
  Weight: 97.7 kg

DRUGS (2)
  1. AUGMENTIN '125' [Suspect]
     Indication: DRUG USE FOR UNKNOWN INDICATION
     Dosage: 875MG UNKNOWN
     Route: 048
  2. SUDAFED 24 HOUR [Suspect]
     Dosage: 1TAB PER DAY
     Route: 048
     Dates: start: 20080202

REACTIONS (2)
  - ADVERSE EVENT [None]
  - MEDICATION RESIDUE [None]
